FAERS Safety Report 9493696 (Version 4)
Quarter: 2013Q4

REPORT INFORMATION
  Report Type: Report from Study
  Country: CA (occurrence: CA)
  Receive Date: 20130902
  Receipt Date: 20131226
  Transmission Date: 20140711
  Serious: Yes (Other)
  Sender: FDA-Public Use
  Company Number: CA-ROCHE-1215165

PATIENT
  Age: 71 Year
  Sex: Female
  Weight: 92 kg

DRUGS (6)
  1. ACTEMRA [Suspect]
     Indication: RHEUMATOID ARTHRITIS
     Route: 042
     Dates: start: 20130213
  2. ACTEMRA [Suspect]
     Route: 042
     Dates: start: 20130508
  3. ARAVA [Concomitant]
  4. BISOPROLOL [Concomitant]
  5. CODEINE [Concomitant]
  6. VALSARTAN [Concomitant]

REACTIONS (4)
  - Carpal tunnel syndrome [Not Recovered/Not Resolved]
  - Heart rate increased [Unknown]
  - Blood pressure increased [Unknown]
  - Pain [Unknown]
